FAERS Safety Report 15402767 (Version 1)
Quarter: 2018Q3

REPORT INFORMATION
  Report Type: Spontaneous
  Country: US (occurrence: US)
  Receive Date: 20180917
  Receipt Date: 20180917
  Transmission Date: 20181010
  Serious: Yes (Life-Threatening, Hospitalization)
  Sender: FDA-Public Use
  Company Number: None

PATIENT
  Age: 80 Year
  Sex: Male

DRUGS (1)
  1. LACOASAMIDE [Suspect]
     Active Substance: LACOSAMIDE
     Indication: SEIZURE

REACTIONS (3)
  - Atrioventricular block [None]
  - Therapy change [None]
  - Sedation [None]

NARRATIVE: CASE EVENT DATE: 20180315
